FAERS Safety Report 14446228 (Version 1)
Quarter: 2018Q1

REPORT INFORMATION
  Report Type: Other
  Country: HK (occurrence: HK)
  Receive Date: 20180126
  Receipt Date: 20180126
  Transmission Date: 20180509
  Serious: Yes (Other)
  Sender: FDA-Public Use
  Company Number: HK-ACIC FINE CHEMICALS INC-2040851

PATIENT
  Age: 61 Year
  Sex: Male

DRUGS (1)
  1. TRANEXAMIC ACID. [Suspect]
     Active Substance: TRANEXAMIC ACID
     Indication: HAEMORRHAGE
     Route: 048

REACTIONS (4)
  - Dysarthria [Recovered/Resolved]
  - Vision blurred [Recovered/Resolved]
  - Gait disturbance [Recovered/Resolved]
  - Myoclonus [Recovered/Resolved]
